FAERS Safety Report 8889896 (Version 2)
Quarter: 2012Q4

REPORT INFORMATION
  Report Type: 
  Country: US (occurrence: US)
  Receive Date: 20121107
  Receipt Date: 20121113
  Transmission Date: 20130627
  Serious: No
  Sender: FDA-Public Use
  Company Number: US-PFIZER INC-2012277313

PATIENT
  Sex: Male

DRUGS (1)
  1. CHANTIX [Suspect]
     Dosage: UNK
     Route: 048
     Dates: start: 201210

REACTIONS (7)
  - Pollakiuria [Unknown]
  - Vision blurred [Unknown]
  - Tremor [Unknown]
  - Thirst [Unknown]
  - Joint swelling [Unknown]
  - Oedema [Unknown]
  - Dry mouth [Unknown]
